FAERS Safety Report 24188978 (Version 1)
Quarter: 2024Q3

REPORT INFORMATION
  Report Type: Spontaneous
  Country: US (occurrence: US)
  Receive Date: 20240808
  Receipt Date: 20240808
  Transmission Date: 20241016
  Serious: No
  Sender: OTSUKA
  Company Number: US-OTSUKA-2024_017026

PATIENT
  Sex: Male
  Weight: 62.14 kg

DRUGS (2)
  1. ABILIFY [Suspect]
     Active Substance: ARIPIPRAZOLE
     Indication: Autism spectrum disorder
     Dosage: 2.5 MG, BID (5 MG-2.5 IN THE MORNING AND 2.5 IN THE AFTERNOON)
     Route: 065
  2. ARIPIPRAZOLE [Suspect]
     Active Substance: ARIPIPRAZOLE
     Indication: Autism spectrum disorder
     Dosage: UNK
     Route: 065

REACTIONS (13)
  - Crying [Unknown]
  - Frustration tolerance decreased [Unknown]
  - Tension [Unknown]
  - Behaviour disorder [Unknown]
  - Feeling abnormal [Unknown]
  - Irritability [Recovered/Resolved]
  - Drooling [Unknown]
  - Depression [Unknown]
  - Musculoskeletal stiffness [Unknown]
  - Restlessness [Recovered/Resolved]
  - Product availability issue [Unknown]
  - Product dose omission issue [Unknown]
  - Off label use [Unknown]
